FAERS Safety Report 13640799 (Version 1)
Quarter: 2017Q2

REPORT INFORMATION
  Report Type: Report from Study
  Country: US (occurrence: US)
  Receive Date: 20170612
  Receipt Date: 20170612
  Transmission Date: 20170830
  Serious: Yes (Death)
  Sender: FDA-Public Use
  Company Number: US-ROCHE-1945591

PATIENT

DRUGS (1)
  1. MYCOPHENOLATE MOFETIL. [Suspect]
     Active Substance: MYCOPHENOLATE MOFETIL
     Indication: SYSTEMIC SCLEROSIS PULMONARY
     Route: 065

REACTIONS (5)
  - Herpes zoster [Unknown]
  - Skin cancer [Fatal]
  - Lung neoplasm malignant [Fatal]
  - Nervous system disorder [Unknown]
  - Asthenia [Unknown]
